FAERS Safety Report 14772358 (Version 2)
Quarter: 2018Q2

REPORT INFORMATION
  Report Type: Report from Study
  Country: None (occurrence: CA)
  Receive Date: 20180418
  Receipt Date: 20180503
  Transmission Date: 20180711
  Serious: Yes (Hospitalization)
  Sender: FDA-Public Use
  Company Number: CA-ABBVIE-18K-028-2322391-00

PATIENT
  Age: 18 Year
  Sex: Male
  Weight: 51.21 kg

DRUGS (4)
  1. HUMIRA [Suspect]
     Active Substance: ADALIMUMAB
     Indication: CROHN^S DISEASE
     Route: 058
     Dates: start: 20131224
  2. CIPROFLOXACIN. [Concomitant]
     Active Substance: CIPROFLOXACIN
     Indication: STOMA SITE INFECTION
     Route: 048
     Dates: start: 20180412
  3. METRONIDAZOLE. [Concomitant]
     Active Substance: METRONIDAZOLE
     Indication: STOMA SITE INFECTION
     Route: 048
     Dates: start: 20180412
  4. CEPHALEXIN. [Concomitant]
     Active Substance: CEPHALEXIN
     Indication: STOMA SITE INFECTION
     Route: 048
     Dates: start: 20180412

REACTIONS (4)
  - Pruritus allergic [Recovered/Resolved]
  - Malaise [Recovered/Resolved]
  - Dermatitis allergic [Recovered/Resolved]
  - Stoma site abscess [Unknown]

NARRATIVE: CASE EVENT DATE: 20180308
